FAERS Safety Report 9074182 (Version 1)
Quarter: 2013Q1

REPORT INFORMATION
  Report Type: Report from Study
  Country: US (occurrence: US)
  Receive Date: 20130129
  Receipt Date: 20130129
  Transmission Date: 20140127
  Serious: Yes (Other)
  Sender: FDA-Public Use
  Company Number: US-ABBOTT-12P-163-0915975-00

PATIENT
  Age: 59 Year
  Sex: Female
  Weight: 87.17 kg

DRUGS (18)
  1. HUMIRA 40 MG/0.8 ML PEN [Suspect]
     Indication: PSORIATIC ARTHROPATHY
     Route: 058
     Dates: start: 201011
  2. HUMIRA 40 MG/0.8 ML PEN [Suspect]
  3. VIT E [Concomitant]
     Indication: PRODUCT USED FOR UNKNOWN INDICATION
  4. VIT D [Concomitant]
     Indication: PRODUCT USED FOR UNKNOWN INDICATION
  5. VIT C [Concomitant]
     Indication: PRODUCT USED FOR UNKNOWN INDICATION
  6. PROPRANOLOL [Concomitant]
     Indication: MIGRAINE
  7. PREVACID [Concomitant]
     Indication: GASTRITIS
  8. PREDNISONE [Concomitant]
     Indication: PRODUCT USED FOR UNKNOWN INDICATION
  9. PHENERGAN [Concomitant]
     Indication: PRODUCT USED FOR UNKNOWN INDICATION
  10. MVI [Concomitant]
     Indication: PRODUCT USED FOR UNKNOWN INDICATION
  11. METHOTREXATE [Concomitant]
     Indication: PRODUCT USED FOR UNKNOWN INDICATION
  12. GENUVIA [Concomitant]
     Indication: DIABETES MELLITUS
  13. GEMFIBEZOLE [Concomitant]
     Indication: BLOOD CHOLESTEROL
  14. CYMBALTA [Concomitant]
     Indication: DEPRESSION
  15. CALCIUM [Concomitant]
     Indication: PRODUCT USED FOR UNKNOWN INDICATION
  16. BENTYL [Concomitant]
     Indication: PRODUCT USED FOR UNKNOWN INDICATION
  17. VITAMIN B12 [Concomitant]
     Indication: PRODUCT USED FOR UNKNOWN INDICATION
  18. ASA [Concomitant]
     Indication: PRODUCT USED FOR UNKNOWN INDICATION

REACTIONS (2)
  - Joint arthroplasty [Unknown]
  - Nasopharyngitis [Recovered/Resolved]
